FAERS Safety Report 9802781 (Version 1)
Quarter: 2014Q1

REPORT INFORMATION
  Report Type: Report from Study
  Country: US (occurrence: US)
  Receive Date: 20140108
  Receipt Date: 20140108
  Transmission Date: 20141002
  Serious: Yes (Hospitalization)
  Sender: FDA-Public Use
  Company Number: US-ROCHE-1329208

PATIENT
  Age: 41 Year
  Sex: Male

DRUGS (6)
  1. LUCENTIS [Suspect]
     Indication: RETINAL VEIN OCCLUSION
     Dosage: OD
     Route: 050
  2. LUCENTIS [Suspect]
     Indication: RETINAL OEDEMA
  3. AVASTIN [Suspect]
     Indication: RETINAL VEIN OCCLUSION
     Dosage: OD
     Route: 065
     Dates: start: 20091105
  4. AVASTIN [Suspect]
     Indication: RETINAL OEDEMA
  5. PREDNISONE [Concomitant]
     Route: 065
  6. HUMIRA [Concomitant]
     Route: 065

REACTIONS (7)
  - Abdominal pain upper [Unknown]
  - Crohn^s disease [Unknown]
  - Visual acuity reduced [Unknown]
  - Visual impairment [Unknown]
  - Vision blurred [Unknown]
  - Off label use [Unknown]
  - Nerve block [Unknown]
